FAERS Safety Report 10229824 (Version 1)
Quarter: 2014Q2

REPORT INFORMATION
  Report Type: Spontaneous
  Country: US (occurrence: US)
  Receive Date: 20140611
  Receipt Date: 20140611
  Transmission Date: 20141212
  Serious: No
  Sender: FDA-Public Use
  Company Number: US-MYLANLABS-2014S1011629

PATIENT
  Sex: Female

DRUGS (3)
  1. CLOPIDOGREL TABLETS USP [Suspect]
     Route: 048
     Dates: start: 2011
  2. LISINOPRIL [Concomitant]
     Indication: BLOOD PRESSURE INCREASED
     Dates: start: 2008
  3. MULTIVITAMIN [Concomitant]

REACTIONS (1)
  - Ocular hyperaemia [Not Recovered/Not Resolved]
